FAERS Safety Report 4357287-3 (Version None)
Quarter: 2004Q2

REPORT INFORMATION
  Report Type: 
  Country: None (occurrence: None)
  Receive Date: 20040512
  Receipt Date: 20040512
  Transmission Date: 20050107
  Serious: Yes (Death)
  Sender: FDA-Public Use
  Company Number: None

PATIENT
  Age: 35 Year
  Sex: Female
  Weight: 68.5 kg

DRUGS (3)
  1. THYMOGLOBULIN [Suspect]
     Indication: IMMUNOSUPPRESSION
     Dosage: 105 MG IV X 1
     Route: 042
     Dates: start: 20040425
  2. THYMOGLOBULIN [Suspect]
     Indication: TRANSPLANT
     Dosage: 105 MG IV X 1
     Route: 042
     Dates: start: 20040425
  3. SOLU-MEDROL [Concomitant]

REACTIONS (7)
  - BRAIN OEDEMA [None]
  - DISSEMINATED INTRAVASCULAR COAGULATION [None]
  - HYPOTENSION [None]
  - HYPOXIA [None]
  - LACTIC ACIDOSIS [None]
  - RESPIRATORY FAILURE [None]
  - VENTRICULAR ARRHYTHMIA [None]
